FAERS Safety Report 8544154-4 (Version None)
Quarter: 2012Q3

REPORT INFORMATION
  Report Type: 
  Country: None (occurrence: None)
  Receive Date: 20120727
  Receipt Date: 20080710
  Transmission Date: 20120928
  Serious: Yes (Other)
  Sender: FDA-Public Use
  Company Number: CO-PFIZER INC-2012180136

PATIENT
  Age: 59 Year
  Sex: Female

DRUGS (7)
  1. GLIBENCLAMIDE [Concomitant]
     Dosage: 5 MG EVERY 8 HOURS
  2. NORVASC [Suspect]
     Dosage: 5 MG, EVERY 24 HOURS
  3. LIPITOR [Suspect]
     Dosage: 40 MG, EVERY 24 HOURS
  4. OLMESARTAN MEDOXOMIL [Suspect]
     Dosage: 20MG, EVERY 24 HOURS
  5. METFORMIN [Concomitant]
     Dosage: 850 MG EVERY 8 HOURS
  6. OLMESARTAN MEDOXOMIL AND HYDROCHLOROTHIZIDE [Suspect]
     Dosage: [OLMESARTAN MEDOXOMIL 20 MG]/[HYDROCHLOROTHIAZIDE 12.5 MG], EVERY 24 HOURS
  7. ACETYLSALICYLIC ACID [Concomitant]
     Dosage: 100 MG,EVERY 24 HOURS

REACTIONS (3)
  - GLYCOSURIA [None]
  - OBESITY [None]
  - HYPERTENSIVE EMERGENCY [None]
